FAERS Safety Report 12404503 (Version 2)
Quarter: 2016Q2

REPORT INFORMATION
  Report Type: Report from Study
  Country: US (occurrence: US)
  Receive Date: 20160525
  Receipt Date: 20160613
  Transmission Date: 20160815
  Serious: Yes (Hospitalization, Other)
  Sender: FDA-Public Use
  Company Number: US-ABBVIE-16P-163-1635354-00

PATIENT
  Age: 59 Year
  Sex: Female

DRUGS (3)
  1. MODERIBA [Concomitant]
     Active Substance: RIBAVIRIN
     Indication: HEPATITIS C
     Route: 048
     Dates: start: 20160222, end: 20160515
  2. SYMBICORT [Concomitant]
     Active Substance: BUDESONIDE\FORMOTEROL FUMARATE DIHYDRATE
     Indication: PRODUCT USED FOR UNKNOWN INDICATION
  3. VIEKIRA PAK [Suspect]
     Active Substance: DASABUVIR\OMBITASVIR\PARITAPREVIR\RITONAVIR
     Indication: HEPATITIS C
     Route: 048
     Dates: start: 20160222, end: 20160515

REACTIONS (3)
  - Asthma [Recovered/Resolved]
  - Drug dose omission [Unknown]
  - Rotator cuff syndrome [Not Recovered/Not Resolved]

NARRATIVE: CASE EVENT DATE: 20160514
